FAERS Safety Report 20177480 (Version 1)
Quarter: 2021Q4

REPORT INFORMATION
  Report Type: Spontaneous
  Country: US (occurrence: None)
  Receive Date: 20211212
  Receipt Date: 20211212
  Transmission Date: 20220303
  Serious: Yes (Other)
  Sender: FDA-Public Use
  Company Number: None

PATIENT
  Age: 31 Year
  Sex: Female
  Weight: 85.73 kg

DRUGS (1)
  1. FOAMING MOUSSE HAND SANITIZER [Suspect]
     Active Substance: ALCOHOL

REACTIONS (1)
  - Dermatitis [None]

NARRATIVE: CASE EVENT DATE: 20210301
